FAERS Safety Report 14015361 (Version 1)
Quarter: 2017Q3

REPORT INFORMATION
  Report Type: Report from Study
  Country: US (occurrence: US)
  Receive Date: 20170927
  Receipt Date: 20170927
  Transmission Date: 20171128
  Serious: Yes (Other)
  Sender: FDA-Public Use
  Company Number: US-BAYER-2017-130407

PATIENT
  Age: 65 Year
  Sex: Female

DRUGS (2)
  1. STIVARGA [Suspect]
     Active Substance: REGORAFENIB
     Indication: COLORECTAL CANCER
     Dosage: 80 MG DAILY FOR 3 WEEKS ON AND 1 WEEK OFF
     Route: 048
     Dates: start: 20170828
  2. STIVARGA [Suspect]
     Active Substance: REGORAFENIB
     Indication: COLORECTAL CANCER
     Dosage: 120 MG DAILY DOSE FOR 3 WEEKS ON AND 1 WEEK OFF
     Route: 048
     Dates: start: 20170630, end: 201708

REACTIONS (4)
  - Herpes zoster [None]
  - Dysphonia [Recovering/Resolving]
  - Fatigue [Not Recovered/Not Resolved]
  - Platelet count decreased [Recovering/Resolving]

NARRATIVE: CASE EVENT DATE: 201706
